FAERS Safety Report 25119771 (Version 1)
Quarter: 2025Q1

REPORT INFORMATION
  Report Type: Spontaneous
  Country: AR (occurrence: AR)
  Receive Date: 20250325
  Receipt Date: 20250325
  Transmission Date: 20250409
  Serious: No
  Sender: PFIZER
  Company Number: AR-PFIZER INC-202500056708

PATIENT
  Age: 8 Year
  Sex: Female

DRUGS (1)
  1. GENOTROPIN [Suspect]
     Active Substance: SOMATROPIN
     Indication: Foetal growth restriction
     Dosage: 0.9 MG, DAILY (7 TIMES PER WEEK)
     Dates: start: 20240314

REACTIONS (3)
  - Device physical property issue [Unknown]
  - Device delivery system issue [Unknown]
  - Needle issue [Unknown]
